FAERS Safety Report 6006151-2 (Version None)
Quarter: 2008Q4

REPORT INFORMATION
  Report Type: 
  Country: None (occurrence: None)
  Receive Date: 20081217
  Receipt Date: 20081124
  Transmission Date: 20090506
  Serious: No
  Sender: FDA-Public Use
  Company Number: US-BAUSCH-2008BL004941

PATIENT
  Age: 77 Year
  Sex: Male

DRUGS (4)
  1. ZYLET [Suspect]
     Indication: CONJUNCTIVITIS
     Route: 047
     Dates: start: 20081117, end: 20081122
  2. METHOTREXATE [Concomitant]
  3. LASIX [Concomitant]
  4. METOPROLOL TARTRATE [Concomitant]

REACTIONS (2)
  - DRUG INEFFECTIVE [None]
  - MEDICATION ERROR [None]
